FAERS Safety Report 4433711-2 (Version None)
Quarter: 2004Q3

REPORT INFORMATION
  Report Type: 
  Country: None (occurrence: None)
  Receive Date: 20040824
  Receipt Date: 20040818
  Transmission Date: 20050211
  Serious: Yes (Disabling)
  Sender: FDA-Public Use
  Company Number: THQ2004A00739

PATIENT
  Age: 43 Year
  Sex: Female

DRUGS (1)
  1. LANSOPRAZOLE [Suspect]
     Indication: GASTRITIS
     Dosage: 30 MG (15 MG, 2 IN 1 D)
     Route: 048

REACTIONS (1)
  - NEUROPATHY PERIPHERAL [None]
